FAERS Safety Report 8971275 (Version 5)
Quarter: 2013Q2

REPORT INFORMATION
  Report Type: Spontaneous
  Country: US (occurrence: US)
  Receive Date: 20121218
  Receipt Date: 20130610
  Transmission Date: 20140414
  Serious: Yes (Other)
  Sender: FDA-Public Use
  Company Number: US-009507513-1212USA005590

PATIENT
  Sex: Female
  Weight: 62.27 kg

DRUGS (2)
  1. FOSAMAX [Suspect]
     Indication: OSTEOPOROSIS
     Dosage: 70 MG, UNK
     Route: 048
     Dates: start: 20010518, end: 2008
  2. PLAVIX [Concomitant]
     Indication: CORONARY ARTERY DISEASE

REACTIONS (31)
  - Osteonecrosis of jaw [Unknown]
  - Sinusitis fungal [Unknown]
  - Carotid arteriosclerosis [Unknown]
  - Subcutaneous abscess [Unknown]
  - Tooth extraction [Unknown]
  - Dental caries [Unknown]
  - Medical device complication [Unknown]
  - Mastication disorder [Unknown]
  - Stomatitis [Unknown]
  - Blood cholesterol increased [Unknown]
  - Hypertension [Unknown]
  - Cardiac disorder [Unknown]
  - Sleep disorder [Unknown]
  - Induration [Unknown]
  - Carotid artery stenosis [Unknown]
  - Aortic stenosis [Unknown]
  - Aortic valve incompetence [Unknown]
  - Anaemia macrocytic [Unknown]
  - Thrombocytopenia [Unknown]
  - Decreased appetite [Unknown]
  - Insomnia [Unknown]
  - Chronic sinusitis [Not Recovered/Not Resolved]
  - Inflammation [Unknown]
  - Tooth infection [Unknown]
  - Dental caries [Unknown]
  - Aspergilloma [Unknown]
  - Neoplasm [Unknown]
  - Fatigue [Unknown]
  - Osteomyelitis [Not Recovered/Not Resolved]
  - Mouth ulceration [Unknown]
  - Oedema mouth [Unknown]
